FAERS Safety Report 19461104 (Version 2)
Quarter: 2021Q3

REPORT INFORMATION
  Report Type: Spontaneous
  Country: JP (occurrence: JP)
  Receive Date: 20210625
  Receipt Date: 20210723
  Transmission Date: 20211014
  Serious: Yes (Death)
  Sender: FDA-Public Use
  Company Number: JP-SUN PHARMACEUTICAL INDUSTRIES LTD-2021R1-301511

PATIENT
  Age: 86 Year
  Sex: Female
  Weight: 54 kg

DRUGS (1)
  1. TRAMADOL/ACETAMINOPHEN [Suspect]
     Active Substance: ACETAMINOPHEN\TRAMADOL
     Indication: SPINAL OSTEOARTHRITIS
     Dosage: 1 TABLET, QID
     Route: 065

REACTIONS (1)
  - Hypoglycaemia [Fatal]
